FAERS Safety Report 23868811 (Version 1)
Quarter: 2024Q2

REPORT INFORMATION
  Report Type: Spontaneous
  Country: US (occurrence: US)
  Receive Date: 20240517
  Receipt Date: 20240517
  Transmission Date: 20240716
  Serious: Yes (Hospitalization)
  Sender: FDA-Public Use
  Company Number: US-BRISTOL-MYERS SQUIBB COMPANY-2024-074216

PATIENT
  Age: 88 Year
  Sex: Male
  Weight: 72.57 kg

DRUGS (4)
  1. THALOMID [Suspect]
     Active Substance: THALIDOMIDE
     Indication: Plasma cell myeloma
     Dosage: DOSE : UNKNOWN;     FREQ : UNKNOWN
     Route: 048
     Dates: start: 2021
  2. THALOMID [Suspect]
     Active Substance: THALIDOMIDE
     Dosage: DOSE : UNKNOWN;     FREQ : UNKNOWN
     Route: 048
     Dates: start: 2021
  3. THALOMID [Suspect]
     Active Substance: THALIDOMIDE
     Dosage: DOSE : UNKNOWN;     FREQ : UNKNOWN
     Route: 048
     Dates: start: 2021
  4. THALOMID [Suspect]
     Active Substance: THALIDOMIDE
     Dosage: DOSE : UNKNOWN;     FREQ : UNKNOWN
     Route: 048
     Dates: start: 2021

REACTIONS (3)
  - Full blood count decreased [Unknown]
  - Nasopharyngitis [Unknown]
  - Illness [Unknown]
